FAERS Safety Report 10230908 (Version 2)
Quarter: 2014Q2

REPORT INFORMATION
  Report Type: Report from Study
  Country: US (occurrence: US)
  Receive Date: 20140611
  Receipt Date: 20140624
  Transmission Date: 20141212
  Serious: No
  Sender: FDA-Public Use
  Company Number: US-ACTELION-A-NJ2014-099873

PATIENT
  Age: 47 Year
  Sex: Male

DRUGS (2)
  1. TRACLEER [Suspect]
     Indication: PULMONARY ARTERIAL HYPERTENSION
     Dosage: UNK
     Route: 048
     Dates: start: 20030404
  2. TYVASO [Concomitant]

REACTIONS (2)
  - Carpal tunnel syndrome [Recovered/Resolved]
  - Ligament operation [Recovered/Resolved]
